FAERS Safety Report 23846206 (Version 5)
Quarter: 2024Q3

REPORT INFORMATION
  Report Type: Report from Study
  Country: US (occurrence: US)
  Receive Date: 20240512
  Receipt Date: 20240709
  Transmission Date: 20241016
  Serious: Yes (Congenital Anomaly)
  Sender: ABBVIE
  Company Number: US-ABBVIE-5752623

PATIENT
  Age: 0 Year
  Sex: Male

DRUGS (4)
  1. RITONAVIR [Suspect]
     Active Substance: RITONAVIR
     Indication: Maternal exposure timing unspecified
     Route: 064
  2. DARUNAVIR [Suspect]
     Active Substance: DARUNAVIR
     Indication: Maternal exposure timing unspecified
     Route: 064
  3. TIVICAY [Suspect]
     Active Substance: DOLUTEGRAVIR SODIUM
     Indication: Maternal exposure timing unspecified
     Route: 064
  4. TENOFOVIR DISOPROXIL FUMARATE [Suspect]
     Active Substance: TENOFOVIR DISOPROXIL FUMARATE
     Indication: Maternal exposure timing unspecified
     Route: 064

REACTIONS (4)
  - Scrotal cyst [Unknown]
  - Foetal exposure during pregnancy [Unknown]
  - Premature baby [Unknown]
  - Perineal cyst [Unknown]

NARRATIVE: CASE EVENT DATE: 20240503
